FAERS Safety Report 8392138 (Version 4)
Quarter: 2013Q3

REPORT INFORMATION
  Report Type: Spontaneous
  Country: ES (occurrence: ES)
  Receive Date: 20120206
  Receipt Date: 20130814
  Transmission Date: 20140515
  Serious: Yes (Other)
  Sender: FDA-Public Use
  Company Number: ES-GLAXOSMITHKLINE-B0779492A

PATIENT
  Age: 65 Year
  Sex: Male

DRUGS (3)
  1. AVODART [Suspect]
     Indication: BENIGN PROSTATIC HYPERPLASIA
     Dosage: 1CAP PER DAY
     Route: 048
     Dates: start: 20101114
  2. OMEPRAZOLE [Concomitant]
  3. NABUMETONE [Concomitant]
     Indication: INFLAMMATION

REACTIONS (5)
  - Breast cancer [Unknown]
  - Gynaecomastia [Unknown]
  - Breast mass [Unknown]
  - Breast inflammation [Unknown]
  - Breast pain [Unknown]
